FAERS Safety Report 6062868-5 (Version None)
Quarter: 2009Q1

REPORT INFORMATION
  Report Type: 
  Country: None (occurrence: None)
  Receive Date: 20090202
  Receipt Date: 20090202
  Transmission Date: 20090719
  Serious: Yes (Hospitalization, Other)
  Sender: FDA-Public Use
  Company Number: None

PATIENT
  Sex: Male
  Weight: 39.9 kg

DRUGS (2)
  1. CYCLOSPORINE [Suspect]
     Indication: BONE MARROW TRANSPLANT
     Dates: start: 20080719, end: 20081211
  2. CYCLOSPORINE [Suspect]
     Indication: GRAFT VERSUS HOST DISEASE
     Dates: start: 20080719, end: 20081211

REACTIONS (8)
  - COGNITIVE DISORDER [None]
  - ISCHAEMIA [None]
  - MENTAL STATUS CHANGES [None]
  - MICROANGIOPATHY [None]
  - RETINAL VEIN OCCLUSION [None]
  - THERAPEUTIC AGENT TOXICITY [None]
  - THROMBOTIC THROMBOCYTOPENIC PURPURA [None]
  - VISUAL ACUITY REDUCED [None]
